FAERS Safety Report 21182750 (Version 1)
Quarter: 2022Q3

REPORT INFORMATION
  Report Type: Report from Study
  Country: CN (occurrence: CN)
  Receive Date: 20220808
  Receipt Date: 20220808
  Transmission Date: 20221026
  Serious: No
  Sender: FDA-Public Use
  Company Number: CN-BAXTER-2022BAX013607

PATIENT
  Age: 68 Year
  Sex: Female
  Weight: 58 kg

DRUGS (6)
  1. AMINO ACIDS\DEXTROSE\ELECTROLYTES NOS\SOYBEAN OIL [Suspect]
     Active Substance: AMINO ACIDS\DEXTROSE\ELECTROLYTES NOS\SOYBEAN OIL
     Dosage: 1500 ML, ONCE TIME AT AN INFUSION RATE OF 3ML/KG/H
     Route: 065
     Dates: start: 20210520, end: 20210522
  2. VITAMINS NOS [Concomitant]
     Active Substance: VITAMINS
     Indication: Drug therapy
     Dosage: 5 ML, UNKNOWN FREQUENCY
     Route: 065
     Dates: start: 20210520, end: 20210522
  3. UNSPECIFIED INGREDIENT [Concomitant]
     Active Substance: UNSPECIFIED INGREDIENT
     Indication: Drug therapy
     Dosage: 30 ML, UNKNOWN FREQUENCY
     Route: 065
     Dates: start: 20210520, end: 20210522
  4. WATER [Concomitant]
     Active Substance: WATER
     Indication: Drug therapy
     Dosage: 10 ML, UNKNOWN FREQUENCY
     Route: 065
     Dates: start: 20210520, end: 20210522
  5. INSULIN NOS [Concomitant]
     Active Substance: INSULIN NOS
     Indication: Drug therapy
     Dosage: 6 IU, UNKNOWN FREQUENCY
     Route: 065
     Dates: start: 20210520, end: 20210522
  6. NADROPARIN CALCIUM [Concomitant]
     Active Substance: NADROPARIN CALCIUM
     Indication: Anticoagulant therapy
     Dosage: 4100 IU, ONCE DAILY
     Route: 058
     Dates: start: 20210519

REACTIONS (1)
  - Dizziness [Recovered/Resolved]

NARRATIVE: CASE EVENT DATE: 20210529
